FAERS Safety Report 9649925 (Version 1)
Quarter: 2013Q4

REPORT INFORMATION
  Report Type: Spontaneous
  Country: US (occurrence: US)
  Receive Date: 20131028
  Receipt Date: 20131028
  Transmission Date: 20140711
  Serious: No
  Sender: FDA-Public Use
  Company Number: US-PURDUE-USA-2013-0099807

PATIENT
  Age: 70 Year
  Sex: Female

DRUGS (4)
  1. OXYCONTIN (NDA 22-272) [Suspect]
     Indication: PAIN
     Dosage: 40 MG, TID
     Route: 048
     Dates: start: 20130307
  2. PERCOCET /00867901/ [Suspect]
     Indication: BREAKTHROUGH PAIN
     Route: 048
  3. ADVAIR [Concomitant]
     Indication: ASTHMA
     Dosage: 1 DF, BID
  4. COMBIVENT [Concomitant]
     Indication: ASTHMA
     Dosage: 1 DF, BID

REACTIONS (2)
  - Breakthrough pain [Unknown]
  - Pruritus [Unknown]
